FAERS Safety Report 5308469-5 (Version None)
Quarter: 2007Q2

REPORT INFORMATION
  Report Type: 
  Country: None (occurrence: None)
  Receive Date: 20070426
  Receipt Date: 20070420
  Transmission Date: 20071010
  Serious: Yes (Other)
  Sender: FDA-Public Use
  Company Number: IT-AVENTIS-200713525GDDC

PATIENT
  Age: 19 Year
  Sex: Male

DRUGS (4)
  1. LANTUS [Suspect]
     Route: 058
     Dates: end: 20070417
  2. LISPRO INSULIN [Concomitant]
     Route: 058
  3. LISPRO INSULIN [Concomitant]
     Dosage: DOSE: 14 IU AT NOON
     Route: 058
  4. LISPRO INSULIN [Concomitant]
     Route: 058

REACTIONS (1)
  - MYALGIA [None]
